FAERS Safety Report 25338875 (Version 3)
Quarter: 2025Q2

REPORT INFORMATION
  Report Type: Spontaneous
  Country: US (occurrence: US)
  Receive Date: 20250520
  Receipt Date: 20250613
  Transmission Date: 20250716
  Serious: No
  Sender: SANOFI AVENTIS
  Company Number: US-SA-2025SA141440

PATIENT
  Age: 53 Year
  Sex: Female

DRUGS (19)
  1. DUPIXENT [Suspect]
     Active Substance: DUPILUMAB
     Indication: Dermatitis atopic
     Dosage: 300 MG, QOW
     Route: 058
     Dates: start: 20220506
  2. DUPIXENT [Suspect]
     Active Substance: DUPILUMAB
     Indication: Huntington^s disease
  3. AUSTEDO [Suspect]
     Active Substance: DEUTETRABENAZINE
  4. ATORVASTATIN [Concomitant]
     Active Substance: ATORVASTATIN
  5. BETAMETHASONE DIPROPIONATE [Concomitant]
     Active Substance: BETAMETHASONE DIPROPIONATE
  6. CITALOPRAM [Concomitant]
     Active Substance: CITALOPRAM
  7. DIVALPROEX SODIUM [Concomitant]
     Active Substance: DIVALPROEX SODIUM
  8. LEVOTHYROXINE [Concomitant]
     Active Substance: LEVOTHYROXINE
  9. PIMECROLIMUS [Concomitant]
     Active Substance: PIMECROLIMUS
  10. PROTOPIC [Concomitant]
     Active Substance: TACROLIMUS
  11. QUETIAPINE [Concomitant]
     Active Substance: QUETIAPINE
  12. ROSUVASTATIN [Concomitant]
     Active Substance: ROSUVASTATIN
  13. TACROLIMUS [Concomitant]
     Active Substance: TACROLIMUS
  14. TOBRAMYCIN [Concomitant]
     Active Substance: TOBRAMYCIN
  15. TRAZODONE [Concomitant]
     Active Substance: TRAZODONE HYDROCHLORIDE
  16. VITAMIN C [Concomitant]
     Active Substance: ASCORBIC ACID
  17. ATORVASTATIN [Concomitant]
     Active Substance: ATORVASTATIN
  18. LEVOTHYROXINE [Concomitant]
     Active Substance: LEVOTHYROXINE
  19. TRAZODONE [Concomitant]
     Active Substance: TRAZODONE HYDROCHLORIDE

REACTIONS (3)
  - Fatigue [Not Recovered/Not Resolved]
  - Sleep disorder [Not Recovered/Not Resolved]
  - Product use in unapproved indication [Unknown]

NARRATIVE: CASE EVENT DATE: 20220506
